FAERS Safety Report 4294197-4 (Version None)
Quarter: 2004Q1

REPORT INFORMATION
  Report Type: 
  Country: None (occurrence: None)
  Receive Date: 20040211
  Receipt Date: 20040211
  Transmission Date: 20041129
  Serious: Yes (Other)
  Sender: FDA-Public Use
  Company Number: None

PATIENT
  Sex: Female
  Weight: 72.5755 kg

DRUGS (1)
  1. SEPTOCAINE [Suspect]
     Indication: NERVE BLOCK
     Dosage: 1 CARPULE AS MAND. BLOCK

REACTIONS (1)
  - HYPOAESTHESIA ORAL [None]
